FAERS Safety Report 13336064 (Version 20)
Quarter: 2017Q3

REPORT INFORMATION
  Report Type: Spontaneous
  Country: IL (occurrence: IL)
  Receive Date: 20170314
  Receipt Date: 20170921
  Transmission Date: 20171127
  Serious: Yes (Death, Hospitalization, Other)
  Sender: FDA-Public Use
  Company Number: IL-PFIZER INC-2017097747

PATIENT
  Age: 73 Year
  Sex: Male

DRUGS (1)
  1. ELELYSO [Suspect]
     Active Substance: TALIGLUCERASE ALFA
     Indication: GAUCHER^S DISEASE
     Dosage: 3600 UNITS ONCE EVERY TWO WEEKS
     Route: 042

REACTIONS (21)
  - Heart rate increased [Recovered/Resolved]
  - Confusional state [Unknown]
  - Abdominal distension [Unknown]
  - Hyperhidrosis [Recovered/Resolved]
  - Haemoglobin decreased [Unknown]
  - Asthenia [Not Recovered/Not Resolved]
  - Fatigue [Unknown]
  - Oedema [Not Recovered/Not Resolved]
  - Immune thrombocytopenic purpura [Not Recovered/Not Resolved]
  - Pyrexia [Unknown]
  - Death [Fatal]
  - Decubitus ulcer [Unknown]
  - Decreased appetite [Unknown]
  - Feeling of despair [Unknown]
  - Thrombocytopenia [Unknown]
  - Skin infection [Unknown]
  - Chest pain [Recovered/Resolved]
  - Tremor [Recovered/Resolved]
  - Myelodysplastic syndrome [Not Recovered/Not Resolved]
  - Protein total decreased [Unknown]
  - Peripheral swelling [Unknown]

NARRATIVE: CASE EVENT DATE: 2017
